FAERS Safety Report 5322846-8 (Version None)
Quarter: 2007Q2

REPORT INFORMATION
  Report Type: 
  Country: None (occurrence: None)
  Receive Date: 20070511
  Receipt Date: 20070502
  Transmission Date: 20071010
  Serious: Yes (Disabling, Other)
  Sender: FDA-Public Use
  Company Number: US-PFIZER INC-2007035689

PATIENT
  Sex: Male

DRUGS (3)
  1. NEURONTIN [Suspect]
     Indication: PERIODIC LIMB MOVEMENT DISORDER
  2. CELEBREX [Concomitant]
  3. VIOXX [Concomitant]

REACTIONS (1)
  - WHEELCHAIR USER [None]
